FAERS Safety Report 7065595-0 (Version None)
Quarter: 2010Q4

REPORT INFORMATION
  Report Type: 
  Country: None (occurrence: None)
  Receive Date: 20101027
  Receipt Date: 20101020
  Transmission Date: 20110411
  Serious: Yes (Hospitalization)
  Sender: FDA-Public Use
  Company Number: FR-ROCHE-735394

PATIENT
  Sex: Male
  Weight: 104 kg

DRUGS (2)
  1. PEGINTERFERON ALFA-2A [Suspect]
     Indication: HEPATITIS C
     Route: 058
     Dates: start: 20090206, end: 20100103
  2. RIBAVIRIN [Suspect]
     Indication: HEPATITIS C
     Route: 048
     Dates: start: 20090206, end: 20100106

REACTIONS (3)
  - HYPOTHYROIDISM [None]
  - PERICARDITIS [None]
  - PLEURAL EFFUSION [None]
